FAERS Safety Report 9916323 (Version 1)
Quarter: 2014Q1

REPORT INFORMATION
  Report Type: Spontaneous
  Country: US (occurrence: None)
  Receive Date: 20140220
  Receipt Date: 20140220
  Transmission Date: 20141002
  Serious: Yes (Hospitalization)
  Sender: FDA-Public Use
  Company Number: None

PATIENT
  Age: 72 Year
  Sex: Female
  Weight: 114 kg

DRUGS (15)
  1. XARELTO [Suspect]
     Indication: CEREBROVASCULAR ACCIDENT PROPHYLAXIS
     Dosage: 15 MG/1 PILL QD ORAL
     Route: 048
     Dates: start: 20140210, end: 20140214
  2. XARELTO [Suspect]
     Indication: ATRIAL FIBRILLATION
     Dosage: 15 MG/1 PILL QD ORAL
     Route: 048
     Dates: start: 20140210, end: 20140214
  3. INSULIN-LANTUS [Concomitant]
  4. NOVOLG [Concomitant]
  5. METOPROLOL [Concomitant]
  6. PROTONIX [Concomitant]
  7. SIMVASTATIN [Concomitant]
  8. TORSEMIDE [Concomitant]
  9. TRAMADOL [Concomitant]
  10. ASPIRIN [Concomitant]
  11. ALLOPURINOL [Concomitant]
  12. AMIODARONE [Concomitant]
  13. FLEXERIL [Concomitant]
  14. CYMBALTA [Concomitant]
  15. NORCOL [Concomitant]

REACTIONS (6)
  - Nausea [None]
  - Syncope [None]
  - Cardio-respiratory arrest [None]
  - Effusion [None]
  - Pericardial effusion [None]
  - Oedema [None]
